FAERS Safety Report 11646580 (Version 2)
Quarter: 2016Q2

REPORT INFORMATION
  Report Type: Spontaneous
  Country: US (occurrence: US)
  Receive Date: 20151020
  Receipt Date: 20160429
  Transmission Date: 20160815
  Serious: No
  Sender: FDA-Public Use
  Company Number: US-ROCHE-1618455

PATIENT
  Sex: Female
  Weight: 53.57 kg

DRUGS (2)
  1. ESBRIET [Suspect]
     Active Substance: PIRFENIDONE
     Indication: IDIOPATHIC PULMONARY FIBROSIS
     Dosage: 3 CAPSULE THREE TIMES IN A DAY
     Route: 048
     Dates: start: 20150515
  2. ESBRIET [Suspect]
     Active Substance: PIRFENIDONE
     Dosage: 3 CPAS PO 3X DAILY
     Route: 048
     Dates: start: 20150413, end: 20150806

REACTIONS (4)
  - Skin ulcer [Recovering/Resolving]
  - Laceration [Unknown]
  - Rash [Recovered/Resolved]
  - Skin exfoliation [Unknown]
